FAERS Safety Report 7370125-X (Version None)
Quarter: 2011Q1

REPORT INFORMATION
  Report Type: 
  Country: None (occurrence: None)
  Receive Date: 20110323
  Receipt Date: 20110311
  Transmission Date: 20110831
  Serious: No
  Sender: FDA-Public Use
  Company Number: PHHY2010US85597

PATIENT
  Sex: Female
  Weight: 102.4 kg

DRUGS (3)
  1. LEXAPRO [Concomitant]
     Indication: DEPRESSION
     Dosage: 20 MG, UNK
  2. ALPRAZOLAM [Concomitant]
     Indication: ANXIETY
     Dosage: 1 MG, PRN
  3. GILENYA [Suspect]
     Indication: MULTIPLE SCLEROSIS
     Dosage: 0.5 MG, DAILY
     Route: 048
     Dates: start: 20101215

REACTIONS (8)
  - PANIC ATTACK [None]
  - ANXIETY [None]
  - HEART RATE DECREASED [None]
  - TACHYCARDIA [None]
  - CHEST DISCOMFORT [None]
  - HYPERHIDROSIS [None]
  - HYPONATRAEMIA [None]
  - HEADACHE [None]
